FAERS Safety Report 11192897 (Version 1)
Quarter: 2015Q2

REPORT INFORMATION
  Report Type: Spontaneous
  Country: US (occurrence: US)
  Receive Date: 20150616
  Receipt Date: 20150616
  Transmission Date: 20150821
  Serious: Yes (Hospitalization, Other)
  Sender: FDA-Public Use
  Company Number: US-AKORN PHARMACEUTICALS-2015AKN00264

PATIENT
  Sex: Female
  Weight: 68.27 kg

DRUGS (2)
  1. MYORISAN [Suspect]
     Active Substance: ISOTRETINOIN
     Dosage: 30 MG, 2X/DAY
     Dates: start: 20150209, end: 20150226
  2. MYORISAN [Suspect]
     Active Substance: ISOTRETINOIN
     Indication: ACNE
     Dosage: 30 MG, 1X/DAY
     Route: 048
     Dates: start: 20150126, end: 20150208

REACTIONS (4)
  - Brain neoplasm [Recovered/Resolved]
  - Head injury [Unknown]
  - Dysarthria [Recovered/Resolved]
  - Post-traumatic headache [Recovered/Resolved]

NARRATIVE: CASE EVENT DATE: 2015
